FAERS Safety Report 5301329-5 (Version None)
Quarter: 2007Q2

REPORT INFORMATION
  Report Type: 
  Country: None (occurrence: None)
  Receive Date: 20070418
  Receipt Date: 20070411
  Transmission Date: 20071010
  Serious: Yes (Other)
  Sender: FDA-Public Use
  Company Number: US-PFIZER INC-2007028759

PATIENT
  Sex: Female
  Weight: 68 kg

DRUGS (8)
  1. XANAX [Suspect]
     Indication: ANXIETY
     Dosage: TEXT:UNKNOWN
     Route: 048
  2. XANAX [Suspect]
     Indication: PANIC DISORDER
  3. RESTORIL [Suspect]
     Indication: SLEEP DISORDER
     Route: 048
  4. KLONOPIN [Suspect]
     Indication: ANXIETY
     Dosage: TEXT:UNKNOWN
     Route: 048
  5. KLONOPIN [Suspect]
     Indication: PANIC DISORDER
  6. AMBIEN [Suspect]
     Indication: SLEEP DISORDER
     Dosage: TEXT:UNKNOWN
     Route: 048
  7. ALCOHOL [Suspect]
     Dosage: TEXT:UNKNOWN
     Route: 048
  8. ZYPREXA [Concomitant]

REACTIONS (2)
  - AMNESIA [None]
  - ROAD TRAFFIC ACCIDENT [None]
